FAERS Safety Report 7322858-9 (Version None)
Quarter: 2011Q1

REPORT INFORMATION
  Report Type: 
  Country: None (occurrence: None)
  Receive Date: 20110217
  Receipt Date: 20110203
  Transmission Date: 20110831
  Serious: Yes (Other)
  Sender: FDA-Public Use
  Company Number: 1000018822

PATIENT
  Sex: Female

DRUGS (3)
  1. ESCITALOPRAM OXALATE [Suspect]
     Dosage: 15 MG (15 MG, 1 IN 1 D),ORAL, 10 MG (10 MG, 1 IN 1 D),ORAL
     Route: 048
     Dates: end: 20110203
  2. PRAZEPAM [Concomitant]
  3. ESCITALOPRAM OXALATE [Suspect]
     Dosage: 10 MG (10 MG, 1 IN 1 D),ORAL
     Route: 048
     Dates: start: 20101101

REACTIONS (4)
  - VOMITING [None]
  - LYMPHOPENIA [None]
  - THROMBOCYTOPENIA [None]
  - NAUSEA [None]
